FAERS Safety Report 7526467-8 (Version None)
Quarter: 2011Q2

REPORT INFORMATION
  Report Type: 
  Country: None (occurrence: None)
  Receive Date: 20110527
  Receipt Date: 20110519
  Transmission Date: 20111010
  Serious: Yes (Death, Hospitalization, Other)
  Sender: FDA-Public Use
  Company Number: US-2011-10067

PATIENT
  Age: 66 Year
  Sex: Male
  Weight: 80 kg

DRUGS (1)
  1. SAMSCA [Suspect]
     Indication: HYPONATRAEMIA
     Dosage: 15 MG MILLIGRAM(S), DAILY, DOSE ORAL
     Route: 048
     Dates: start: 20101216, end: 20101217

REACTIONS (12)
  - HYPERNATRAEMIA [None]
  - LABORATORY TEST INTERFERENCE [None]
  - PROSTATOMEGALY [None]
  - WEIGHT DECREASED [None]
  - ENCEPHALOPATHY [None]
  - CONVULSION [None]
  - POSTURING [None]
  - DEPRESSED LEVEL OF CONSCIOUSNESS [None]
  - MENTAL STATUS CHANGES [None]
  - RAPID CORRECTION OF HYPONATRAEMIA [None]
  - CARDIAC FAILURE CONGESTIVE [None]
  - POLYURIA [None]
